FAERS Safety Report 8625578-3 (Version None)
Quarter: 2012Q3

REPORT INFORMATION
  Report Type: 
  Country: None (occurrence: None)
  Receive Date: 20120827
  Receipt Date: 20120820
  Transmission Date: 20120928
  Serious: No
  Sender: FDA-Public Use
  Company Number: BR-ROCHE-1104753

PATIENT
  Age: 24 Year
  Sex: Female
  Weight: 55 kg

DRUGS (2)
  1. ISOTRETINOIN [Suspect]
     Indication: ACNE
     Route: 048
  2. ISOTRETINOIN [Suspect]
     Route: 048
     Dates: end: 20120818

REACTIONS (1)
  - PREGNANCY [None]
